FAERS Safety Report 7573990-6 (Version None)
Quarter: 2011Q2

REPORT INFORMATION
  Report Type: 
  Country: None (occurrence: None)
  Receive Date: 20110627
  Receipt Date: 20110617
  Transmission Date: 20111010
  Serious: Yes (Other)
  Sender: FDA-Public Use
  Company Number: US-JNJFOC-20110400468

PATIENT

DRUGS (3)
  1. CARBOPLATIN [Suspect]
     Indication: BREAST CANCER METASTATIC
     Dosage: EVERY 3 WEEKS
     Route: 065
     Dates: start: 20081014, end: 20090303
  2. BEVACIZUMAB [Suspect]
     Indication: BREAST CANCER METASTATIC
     Dosage: EVERY 3 WEEKS
     Route: 065
     Dates: start: 20081014, end: 20090303
  3. DOXIL [Suspect]
     Indication: BREAST CANCER METASTATIC
     Dosage: EVERY 3 WEEKS
     Route: 042
     Dates: start: 20081014, end: 20090303

REACTIONS (1)
  - HYPERTENSION [None]
